FAERS Safety Report 10686592 (Version 1)
Quarter: 2015Q1

REPORT INFORMATION
  Report Type: Spontaneous
  Country: HU (occurrence: HU)
  Receive Date: 20150101
  Receipt Date: 20150101
  Transmission Date: 20150720
  Serious: Yes (Other)
  Sender: FDA-Public Use
  Company Number: HU-BIOGENIDEC-2014BI137946

PATIENT
  Age: 24 Year
  Sex: Female

DRUGS (2)
  1. TECFIDERA [Suspect]
     Active Substance: DIMETHYL FUMARATE
     Indication: MULTIPLE SCLEROSIS
     Route: 048
     Dates: start: 20141015, end: 20141021
  2. TECFIDERA [Suspect]
     Active Substance: DIMETHYL FUMARATE
     Indication: MULTIPLE SCLEROSIS
     Route: 048
     Dates: start: 20141022, end: 20141112

REACTIONS (2)
  - Oral herpes [Recovered/Resolved]
  - Herpangina [Recovered/Resolved]

NARRATIVE: CASE EVENT DATE: 20141022
